FAERS Safety Report 10936406 (Version 3)
Quarter: 2015Q2

REPORT INFORMATION
  Report Type: Report from Study
  Country: US (occurrence: US)
  Receive Date: 20150321
  Receipt Date: 20150414
  Transmission Date: 20150821
  Serious: Yes (Hospitalization)
  Sender: FDA-Public Use
  Company Number: US-BIOGENIDEC-2015BI035883

PATIENT
  Sex: Female
  Weight: 98 kg

DRUGS (18)
  1. DEPAKOTE ER [Concomitant]
     Active Substance: DIVALPROEX SODIUM
  2. GLUCOTROL [Concomitant]
     Active Substance: GLIPIZIDE
  3. XANAX [Concomitant]
     Active Substance: ALPRAZOLAM
  4. EFFEXOR [Concomitant]
     Active Substance: VENLAFAXINE HYDROCHLORIDE
  5. TENORMIN [Concomitant]
     Active Substance: ATENOLOL
  6. GLUCOPHAGE [Concomitant]
     Active Substance: METFORMIN HYDROCHLORIDE
  7. IMIPRAMINE [Concomitant]
     Active Substance: IMIPRAMINE
  8. 4 AMINOPYRIDINE [Concomitant]
     Indication: FATIGUE
  9. ESTRADIOL. [Concomitant]
     Active Substance: ESTRADIOL
  10. SYNTHROID [Concomitant]
     Active Substance: LEVOTHYROXINE SODIUM
  11. PRAVACHOL [Concomitant]
     Active Substance: PRAVASTATIN SODIUM
  12. AVONEX [Suspect]
     Active Substance: INTERFERON BETA-1A
     Indication: MULTIPLE SCLEROSIS
     Route: 030
  13. AVONEX [Suspect]
     Active Substance: INTERFERON BETA-1A
     Indication: MULTIPLE SCLEROSIS
     Route: 030
     Dates: start: 20030916
  14. LANTUS [Concomitant]
     Active Substance: INSULIN GLARGINE
  15. RISPERDAL [Concomitant]
     Active Substance: RISPERIDONE
  16. COPAXONE [Concomitant]
     Active Substance: GLATIRAMER ACETATE
     Indication: MULTIPLE SCLEROSIS
     Dates: start: 20030602, end: 20060606
  17. REBIF [Concomitant]
     Active Substance: INTERFERON BETA-1A
     Indication: MULTIPLE SCLEROSIS
     Dates: start: 20030701, end: 20030704
  18. PROTONIX [Concomitant]
     Active Substance: PANTOPRAZOLE SODIUM

REACTIONS (4)
  - Limb injury [Not Recovered/Not Resolved]
  - Adverse drug reaction [Unknown]
  - Fall [Recovered/Resolved]
  - Shock [Recovered/Resolved]

NARRATIVE: CASE EVENT DATE: 2003
